FAERS Safety Report 21005644 (Version 1)
Quarter: 2022Q2

REPORT INFORMATION
  Report Type: Spontaneous
  Country: US (occurrence: None)
  Receive Date: 20220624
  Receipt Date: 20220624
  Transmission Date: 20220721
  Serious: No
  Sender: FDA-Public Use
  Company Number: 2022A211390

PATIENT
  Age: 26093 Day
  Sex: Female
  Weight: 71.7 kg

DRUGS (1)
  1. FASENRA [Suspect]
     Active Substance: BENRALIZUMAB
     Indication: Asthma
     Route: 058
     Dates: start: 202006

REACTIONS (1)
  - Eye allergy [Unknown]

NARRATIVE: CASE EVENT DATE: 20220603
